FAERS Safety Report 16907671 (Version 1)
Quarter: 2019Q4

REPORT INFORMATION
  Report Type: Spontaneous
  Country: CA (occurrence: CA)
  Receive Date: 20191011
  Receipt Date: 20191011
  Transmission Date: 20200122
  Serious: Yes (Other)
  Sender: FDA-Public Use
  Company Number: CA-AUROBINDO-AUR-APL-2019-065749

PATIENT
  Age: 1 Year
  Sex: Female

DRUGS (1)
  1. CEPHALEXIN. [Suspect]
     Active Substance: CEPHALEXIN
     Indication: LYMPH GLAND INFECTION
     Dosage: UNK, FOUR TIMES A DAY
     Route: 048

REACTIONS (2)
  - Flatulence [Unknown]
  - Diarrhoea [Unknown]
